FAERS Safety Report 5245880-5 (Version None)
Quarter: 2007Q1

REPORT INFORMATION
  Report Type: 
  Country: None (occurrence: None)
  Receive Date: 20070216
  Receipt Date: 20070207
  Transmission Date: 20070707
  Serious: Yes (Other)
  Sender: FDA-Public Use
  Company Number: 2007306684

PATIENT
  Sex: Male

DRUGS (1)
  1. BENADRYL [Suspect]
     Dosage: UNSPECIFIED, ORAL
     Route: 048

REACTIONS (4)
  - CONFUSIONAL STATE [None]
  - FALL [None]
  - PHARMACEUTICAL PRODUCT COMPLAINT [None]
  - WRONG DRUG ADMINISTERED [None]
